FAERS Safety Report 11839603 (Version 2)
Quarter: 2015Q4

REPORT INFORMATION
  Report Type: Spontaneous
  Country: US (occurrence: US)
  Receive Date: 20151216
  Receipt Date: 20151218
  Transmission Date: 20160305
  Serious: No
  Sender: FDA-Public Use
  Company Number: US-BAYER-2015-489862

PATIENT
  Age: 60 Year
  Sex: Female
  Weight: 63.49 kg

DRUGS (2)
  1. ALEVE [Suspect]
     Active Substance: NAPROXEN SODIUM
     Dosage: 6 DF, UNK
  2. WOBENZYM N [BROMELAINS,TRYPSIN] [Concomitant]
     Dosage: UNK

REACTIONS (3)
  - Retching [None]
  - Product use issue [None]
  - Vomiting [None]

NARRATIVE: CASE EVENT DATE: 20151215
